FAERS Safety Report 19555517 (Version 1)
Quarter: 2021Q3

REPORT INFORMATION
  Report Type: Spontaneous
  Country: AU (occurrence: AU)
  Receive Date: 20210715
  Receipt Date: 20210715
  Transmission Date: 20211014
  Serious: Yes (Hospitalization)
  Sender: FDA-Public Use
  Company Number: AU-PFIZER INC-2021823422

PATIENT
  Age: 9 Year
  Sex: Female
  Weight: 27.9 kg

DRUGS (2)
  1. LIGNOCAINE [LIDOCAINE HYDROCHLORIDE] [Concomitant]
     Active Substance: LIDOCAINE HYDROCHLORIDE
     Indication: LOCAL ANAESTHESIA
     Dosage: UNK
     Route: 030
     Dates: start: 20210602, end: 20210602
  2. BICILLIN L?A [Suspect]
     Active Substance: PENICILLIN G BENZATHINE
     Indication: RHEUMATIC HEART DISEASE
     Dosage: 1.2 MU, EVERY 28 DAYS
     Route: 030
     Dates: start: 20210602, end: 20210628

REACTIONS (10)
  - Arthralgia [Recovered/Resolved]
  - Joint swelling [Recovered/Resolved]
  - White blood cells urine positive [Unknown]
  - Rash macular [Recovered/Resolved]
  - Off label use [Unknown]
  - Protein urine present [Unknown]
  - Gait disturbance [Recovered/Resolved]
  - Rash [Recovered/Resolved]
  - Gait inability [Recovered/Resolved]
  - Peripheral swelling [Recovered/Resolved]

NARRATIVE: CASE EVENT DATE: 202106
